FAERS Safety Report 19051667 (Version 4)
Quarter: 2022Q4

REPORT INFORMATION
  Report Type: Report from Study
  Country: FR (occurrence: FR)
  Receive Date: 20210324
  Receipt Date: 20221027
  Transmission Date: 20230113
  Serious: Yes (Hospitalization)
  Sender: FDA-Public Use
  Company Number: FR-TAKEDA-FR201814827

PATIENT
  Age: 65 Year
  Sex: Female
  Weight: 40 kg

DRUGS (78)
  1. TEDUGLUTIDE [Suspect]
     Active Substance: TEDUGLUTIDE
     Indication: Short-bowel syndrome
     Dosage: 2 MILLIGRAM, QD
     Route: 042
     Dates: start: 20160322, end: 20160920
  2. TEDUGLUTIDE [Suspect]
     Active Substance: TEDUGLUTIDE
     Indication: Short-bowel syndrome
     Dosage: 2 MILLIGRAM, QD
     Route: 042
     Dates: start: 20160322, end: 20160920
  3. TEDUGLUTIDE [Suspect]
     Active Substance: TEDUGLUTIDE
     Indication: Short-bowel syndrome
     Dosage: 2 MILLIGRAM, QD
     Route: 042
     Dates: start: 20160322, end: 20160920
  4. TEDUGLUTIDE [Suspect]
     Active Substance: TEDUGLUTIDE
     Indication: Short-bowel syndrome
     Dosage: 2 MILLIGRAM, QD
     Route: 042
     Dates: start: 20160322, end: 20160920
  5. TEDUGLUTIDE [Suspect]
     Active Substance: TEDUGLUTIDE
     Dosage: 1.8 MILLIGRAM, QD
     Route: 042
     Dates: start: 20160920, end: 20171130
  6. TEDUGLUTIDE [Suspect]
     Active Substance: TEDUGLUTIDE
     Dosage: 1.8 MILLIGRAM, QD
     Route: 042
     Dates: start: 20160920, end: 20171130
  7. TEDUGLUTIDE [Suspect]
     Active Substance: TEDUGLUTIDE
     Dosage: 1.8 MILLIGRAM, QD
     Route: 042
     Dates: start: 20160920, end: 20171130
  8. TEDUGLUTIDE [Suspect]
     Active Substance: TEDUGLUTIDE
     Dosage: 1.8 MILLIGRAM, QD
     Route: 042
     Dates: start: 20160920, end: 20171130
  9. TEDUGLUTIDE [Suspect]
     Active Substance: TEDUGLUTIDE
     Dosage: 1.6 MILLIGRAM, QD
     Route: 042
     Dates: start: 20171130, end: 20180103
  10. TEDUGLUTIDE [Suspect]
     Active Substance: TEDUGLUTIDE
     Dosage: 1.6 MILLIGRAM, QD
     Route: 042
     Dates: start: 20171130, end: 20180103
  11. TEDUGLUTIDE [Suspect]
     Active Substance: TEDUGLUTIDE
     Dosage: 1.6 MILLIGRAM, QD
     Route: 042
     Dates: start: 20171130, end: 20180103
  12. TEDUGLUTIDE [Suspect]
     Active Substance: TEDUGLUTIDE
     Dosage: 1.6 MILLIGRAM, QD
     Route: 042
     Dates: start: 20171130, end: 20180103
  13. TEDUGLUTIDE [Suspect]
     Active Substance: TEDUGLUTIDE
     Dosage: 1.6 MILLIGRAM, QD
     Route: 042
     Dates: start: 20180104
  14. TEDUGLUTIDE [Suspect]
     Active Substance: TEDUGLUTIDE
     Dosage: 1.6 MILLIGRAM, QD
     Route: 042
     Dates: start: 20180104
  15. TEDUGLUTIDE [Suspect]
     Active Substance: TEDUGLUTIDE
     Dosage: 1.6 MILLIGRAM, QD
     Route: 042
     Dates: start: 20180104
  16. TEDUGLUTIDE [Suspect]
     Active Substance: TEDUGLUTIDE
     Dosage: 1.6 MILLIGRAM, QD
     Route: 042
     Dates: start: 20180104
  17. CERNEVIT [Concomitant]
     Active Substance: VITAMINS
     Indication: Supplementation therapy
     Dosage: UNK
     Route: 065
  18. ACLASTA [Concomitant]
     Active Substance: ZOLEDRONIC ACID
     Indication: Osteoporosis prophylaxis
     Dosage: 5 MILLIGRAM, ONCE A YEAR
     Route: 042
     Dates: start: 20200316
  19. ACLASTA [Concomitant]
     Active Substance: ZOLEDRONIC ACID
     Dosage: 5 MILLIGRAM, ONCE A YEAR
     Route: 048
     Dates: start: 201212, end: 201212
  20. ACLASTA [Concomitant]
     Active Substance: ZOLEDRONIC ACID
     Dosage: 5 MILLIGRAM, ONCE A YEAR
     Route: 042
     Dates: start: 20161201, end: 20161201
  21. WARFARIN SODIUM [Concomitant]
     Active Substance: WARFARIN SODIUM
     Indication: Prophylaxis
     Dosage: 20.50 MILLIGRAM, QD
     Route: 048
     Dates: start: 20200316
  22. WARFARIN SODIUM [Concomitant]
     Active Substance: WARFARIN SODIUM
     Dosage: 2 MILLIGRAM, QD
     Route: 048
     Dates: end: 2020
  23. NICOPATCH [Concomitant]
     Active Substance: NICOTINE
     Indication: Tobacco user
     Dosage: 21 MILLIGRAM, QD
     Route: 058
  24. MAGNESIUM CITRATE [Concomitant]
     Active Substance: MAGNESIUM CITRATE
     Indication: Supplementation therapy
     Dosage: 200 MILLIGRAM, BID
     Route: 048
     Dates: start: 20190218, end: 2020
  25. LOVENOX [Concomitant]
     Active Substance: ENOXAPARIN SODIUM
     Indication: Thrombosis
     Dosage: 0.40 MILLILITER, BID
     Route: 058
     Dates: start: 20190208, end: 2020
  26. LOVENOX [Concomitant]
     Active Substance: ENOXAPARIN SODIUM
     Indication: Jugular vein thrombosis
     Dosage: 0.40 MILLILITER, QD
     Route: 058
     Dates: start: 201404, end: 201404
  27. LOVENOX [Concomitant]
     Active Substance: ENOXAPARIN SODIUM
     Indication: Prophylaxis
     Dosage: 2000 INTERNATIONAL UNIT, QD
     Route: 058
     Dates: start: 201712, end: 201712
  28. ESOMEPRAZOLE [Concomitant]
     Active Substance: ESOMEPRAZOLE
     Indication: Short-bowel syndrome
     Dosage: 20 MILLIGRAM, QD
     Route: 048
     Dates: start: 2012
  29. IMODIUM [Concomitant]
     Active Substance: LOPERAMIDE HYDROCHLORIDE
     Indication: Short-bowel syndrome
     Dosage: 4 MILLIGRAM, TID
     Route: 048
     Dates: start: 2012, end: 201701
  30. IMODIUM [Concomitant]
     Active Substance: LOPERAMIDE HYDROCHLORIDE
     Dosage: 3 DOSAGE FORM
     Route: 048
     Dates: start: 2017
  31. DAFALGAN [Concomitant]
     Active Substance: ACETAMINOPHEN
     Indication: Arthralgia
     Dosage: 500 MILLIGRAM
     Route: 048
     Dates: start: 2013
  32. MINERALS\VITAMINS [Concomitant]
     Active Substance: MINERALS\VITAMINS
     Indication: Supplementation therapy
     Dosage: 2 DOSAGE FORM, QD
     Route: 048
     Dates: start: 2013
  33. CARBOHYDRATES\FATTY ACIDS\MINERALS\PROTEIN\VITAMINS [Concomitant]
     Active Substance: CARBOHYDRATES\FATTY ACIDS\MINERALS\PROTEIN\VITAMINS
     Indication: Supplementation therapy
     Dosage: 400 MILLIGRAM, TID
     Route: 048
     Dates: start: 2013
  34. Cacit [Concomitant]
     Indication: Osteoporosis
     Dosage: 500 MILLIGRAM, QD
     Route: 048
     Dates: start: 2012
  35. VITAMIN D [Concomitant]
     Active Substance: VITAMIN D NOS
     Indication: Osteoporosis
     Dosage: 100000 INTERNATIONAL UNIT, SINGLE
     Route: 048
     Dates: start: 2012
  36. MAGNESIUM [Concomitant]
     Active Substance: MAGNESIUM
     Indication: Supplementation therapy
     Dosage: 100 MILLIGRAM
     Route: 048
     Dates: start: 2013
  37. GENTAMICIN [Concomitant]
     Active Substance: GENTAMICIN
     Indication: Vascular device infection
     Dosage: 40 MILLIGRAM, QD
     Route: 042
     Dates: start: 201305, end: 201305
  38. RIFAMPIN [Concomitant]
     Active Substance: RIFAMPIN
     Indication: Vascular device infection
     Dosage: 300 MILLIGRAM, QD
     Route: 042
     Dates: start: 201305, end: 201305
  39. RIFAMPIN [Concomitant]
     Active Substance: RIFAMPIN
     Dosage: 600 MILLIGRAM, QD
     Route: 048
     Dates: start: 20140331, end: 20140406
  40. VANCOMYCIN [Concomitant]
     Active Substance: VANCOMYCIN
     Indication: Vascular device infection
     Dosage: 1 GRAM, QD
     Route: 042
     Dates: start: 201305, end: 201305
  41. FERROUS SULFATE [Concomitant]
     Active Substance: FERROUS SULFATE
     Indication: Supplementation therapy
     Dosage: 80 MILLIGRAM, BID
     Route: 048
     Dates: start: 201310, end: 20160713
  42. AUGMENTIN [Concomitant]
     Active Substance: AMOXICILLIN\CLAVULANATE POTASSIUM
     Indication: Abscess
     Dosage: 1 GRAM, TID
     Route: 048
     Dates: start: 201311, end: 201311
  43. CEFTRIAXONE SODIUM [Concomitant]
     Active Substance: CEFTRIAXONE SODIUM
     Indication: Cystitis
     Dosage: 1 GRAM, QD
     Route: 058
     Dates: start: 20131209, end: 20131219
  44. MOTILIUM [Concomitant]
     Active Substance: DOMPERIDONE
     Indication: Nausea
     Dosage: 10 MILLIGRAM, QD
     Route: 048
     Dates: start: 201312
  45. POTASSIUM CHLORIDE [Concomitant]
     Active Substance: POTASSIUM CHLORIDE
     Indication: Supplementation therapy
     Dosage: 600 MILLIGRAM, TID
     Route: 048
     Dates: start: 201312
  46. SODIUM BICARBONATE [Concomitant]
     Active Substance: SODIUM BICARBONATE
     Indication: Supplementation therapy
     Dosage: 1 GRAM, QD
     Route: 048
     Dates: start: 201312
  47. SODIUM BICARBONATE [Concomitant]
     Active Substance: SODIUM BICARBONATE
     Dosage: 1000 MILLIGRAM, TID
     Route: 048
     Dates: start: 201801, end: 2020
  48. VITAMIN K1 [Concomitant]
     Active Substance: PHYTONADIONE
     Indication: Supplementation therapy
     Dosage: 1 DOSAGE FORM
     Route: 042
     Dates: start: 201312
  49. STRONTIUM RANELATE [Concomitant]
     Active Substance: STRONTIUM RANELATE
     Indication: Osteoporosis
     Dosage: 2 GRAM, QD
     Route: 048
     Dates: start: 201312, end: 201608
  50. ACUPAN [Concomitant]
     Active Substance: NEFOPAM HYDROCHLORIDE
     Indication: Arthralgia
     Dosage: 20 MILLIGRAM
     Route: 042
     Dates: start: 201312, end: 201412
  51. TRAMADOL HYDROCHLORIDE [Concomitant]
     Active Substance: TRAMADOL HYDROCHLORIDE
     Indication: Arthralgia
     Dosage: 50 MILLIGRAM
     Route: 048
     Dates: start: 201312, end: 201412
  52. OFLOXACIN [Concomitant]
     Active Substance: OFLOXACIN
     Indication: Product used for unknown indication
     Dosage: 200 MILLIGRAM, QD
     Route: 048
     Dates: start: 20140331, end: 20140406
  53. Previscan [Concomitant]
     Indication: Jugular vein thrombosis
     Dosage: 10 MILLIGRAM, QD
     Route: 048
     Dates: start: 201404
  54. POTASSIUM [Concomitant]
     Active Substance: POTASSIUM
     Indication: Supplementation therapy
     Dosage: 20 UNK
     Route: 042
     Dates: start: 201411, end: 201411
  55. TRAMADOL HYDROCHLORIDE [Concomitant]
     Active Substance: TRAMADOL HYDROCHLORIDE
     Indication: Arthralgia
     Dosage: 100 MILLIGRAM, BID
     Route: 048
     Dates: start: 20141219, end: 20150119
  56. LANSOPRAZOLE [Concomitant]
     Active Substance: LANSOPRAZOLE
     Indication: Nausea
     Dosage: 30 MILLIGRAM, QD
     Route: 048
     Dates: start: 20161007
  57. MAGNE B6 [Concomitant]
     Active Substance: MAGNESIUM\PYRIDOXINE
     Indication: Supplementation therapy
     Dosage: 2 DOSAGE FORM, TID
     Route: 048
     Dates: start: 20170109, end: 201801
  58. DAFALGAN CODEINE [Concomitant]
     Active Substance: ACETAMINOPHEN\CODEINE PHOSPHATE
     Indication: Diarrhoea
     Dosage: 1 GRAM, QD
     Route: 048
     Dates: start: 20170213
  59. CALCIUM\CHOLECALCIFEROL [Concomitant]
     Active Substance: CALCIUM\CHOLECALCIFEROL
     Indication: Supplementation therapy
     Dosage: UNK UNK, BID
     Route: 048
     Dates: start: 20170109, end: 2017
  60. CALCIUM\CHOLECALCIFEROL [Concomitant]
     Active Substance: CALCIUM\CHOLECALCIFEROL
     Dosage: 1 INTERNATIONAL UNIT, TID
     Route: 048
     Dates: start: 2017
  61. PICOLITE [Concomitant]
     Indication: Fluid replacement
     Dosage: 1 DOSAGE FORM, BID
     Route: 048
     Dates: start: 20170329
  62. ADIARIL [Concomitant]
     Indication: Fluid replacement
     Dosage: UNK UNK, BID
     Route: 048
     Dates: start: 20170109, end: 20170329
  63. CHOLECALCIFEROL [Concomitant]
     Active Substance: CHOLECALCIFEROL
     Indication: Osteoporosis
     Dosage: 1 DOSAGE FORM
     Route: 048
     Dates: start: 20170329, end: 201705
  64. CHOLECALCIFEROL [Concomitant]
     Active Substance: CHOLECALCIFEROL
     Dosage: 1 DOSAGE FORM
     Route: 048
     Dates: start: 201705
  65. ACTONEL [Concomitant]
     Active Substance: RISEDRONATE SODIUM
     Indication: Osteoporosis
     Dosage: 35 MILLIGRAM, 1/WEEK
     Route: 048
     Dates: start: 20170414
  66. FUROSEMIDE [Concomitant]
     Active Substance: FUROSEMIDE
     Indication: Respiratory distress
     Dosage: 20 MILLIGRAM, QD
     Route: 048
     Dates: start: 201712
  67. PHOSPHORUS [Concomitant]
     Active Substance: PHOSPHORUS
     Indication: Supplementation therapy
     Dosage: 100 GTT DROPS, QD
     Route: 048
     Dates: start: 201801, end: 20180119
  68. PIPERACILLIN SODIUM\TAZOBACTAM SODIUM [Concomitant]
     Active Substance: PIPERACILLIN SODIUM\TAZOBACTAM SODIUM
     Indication: Pneumonia
     Dosage: 2000 MILLIGRAM, TID
     Route: 042
     Dates: start: 20171213, end: 20171220
  69. SPIRAMYCIN [Concomitant]
     Active Substance: SPIRAMYCIN
     Indication: Pneumonia
     Dosage: 1.5 INTERNATIONAL UNIT
     Route: 048
     Dates: start: 20171214, end: 20171217
  70. BACTRIM [Concomitant]
     Active Substance: SULFAMETHOXAZOLE\TRIMETHOPRIM
     Indication: Pneumonia
     Dosage: 400 MILLIGRAM, QID
     Route: 048
     Dates: start: 20171215, end: 20171220
  71. PIPERACILLIN SODIUM [Concomitant]
     Active Substance: PIPERACILLIN SODIUM
     Indication: Product used for unknown indication
     Dosage: 4000 MILLIGRAM, SINGLE
     Route: 042
     Dates: start: 20180209, end: 20180209
  72. PIPERACILLIN SODIUM [Concomitant]
     Active Substance: PIPERACILLIN SODIUM
     Dosage: 4000 MILLIGRAM, BID
     Route: 042
     Dates: start: 20180210, end: 20180302
  73. AMIKACIN SULFATE [Concomitant]
     Active Substance: AMIKACIN SULFATE
     Indication: Product used for unknown indication
     Dosage: 750 MILLIGRAM, SINGLE
     Route: 042
     Dates: start: 20180209, end: 20180209
  74. AMIKACIN SULFATE [Concomitant]
     Active Substance: AMIKACIN SULFATE
     Dosage: 750 MILLIGRAM, BID
     Route: 042
     Dates: start: 20180210, end: 20180302
  75. INNOHEP [Concomitant]
     Active Substance: TINZAPARIN SODIUM
     Indication: Jugular vein thrombosis
     Dosage: 60000 INTERNATIONAL UNIT, QD
     Route: 058
     Dates: start: 20171214, end: 20180329
  76. EUPANTOL [Concomitant]
     Active Substance: PANTOPRAZOLE SODIUM
     Indication: Gastrooesophageal reflux disease
     Dosage: 40 MILLIGRAM, QD
     Route: 048
     Dates: start: 20180329, end: 2020
  77. AMINO ACIDS\DEXTROSE\ELECTROLYTES NOS\SOYBEAN OIL [Concomitant]
     Active Substance: AMINO ACIDS\DEXTROSE\ELECTROLYTES NOS\SOYBEAN OIL
     Indication: Supplementation therapy
     Dosage: 625 MILLIGRAM, QD
     Route: 042
     Dates: start: 20180329, end: 2020
  78. IRON\MINERALS\POTASSIUM IOD\SODIUM FLUORIDE\SODIUM MOLYBDATE\SODIUM SE [Concomitant]
     Active Substance: IRON\MINERALS\POTASSIUM IOD\SODIUM FLUORIDE\SODIUM MOLYBDATE\SODIUM SELENITE\ZINC
     Indication: Supplementation therapy
     Dosage: 1 DOSAGE FORM, QD
     Route: 042
     Dates: start: 20180329

REACTIONS (2)
  - Endoscopy upper gastrointestinal tract [Recovered/Resolved]
  - Gastritis [Recovered/Resolved]

NARRATIVE: CASE EVENT DATE: 20180326
